FAERS Safety Report 11346543 (Version 1)
Quarter: 2015Q3

REPORT INFORMATION
  Report Type: Spontaneous
  Country: US (occurrence: US)
  Receive Date: 20150803
  Receipt Date: 20150803
  Transmission Date: 20151125
  Serious: No
  Sender: FDA-Public Use
  Company Number: US-ELI_LILLY_AND_COMPANY-US201011001655

PATIENT
  Age: 72 Year
  Sex: Female

DRUGS (18)
  1. LOMOTIL [Concomitant]
     Active Substance: ATROPINE SULFATE\DIPHENOXYLATE HYDROCHLORIDE
     Dosage: 1 D/F, 4/D
  2. NEXIUM [Concomitant]
     Active Substance: ESOMEPRAZOLE MAGNESIUM
     Dosage: 1 D/F, DAILY (1/D)
  3. DUODERM [Concomitant]
     Dosage: UNK, 2/W
  4. PHENERGAN [Concomitant]
     Active Substance: PROMETHAZINE HYDROCHLORIDE
     Dosage: 1 D/F, EVERY 4 HRS
     Route: 048
  5. LIDODERM [Concomitant]
     Active Substance: LIDOCAINE
     Dosage: 1 D/F, 2/D
  6. MYCOLOG [Concomitant]
     Active Substance: GRAMICIDIN\NEOMYCIN SULFATE\NYSTATIN\TRIAMCINOLONE ACETONIDE
     Dosage: UNK, 3/D
  7. TRAMADOL. [Concomitant]
     Active Substance: TRAMADOL
     Indication: RASH
  8. IMODIUM [Concomitant]
     Active Substance: LOPERAMIDE HYDROCHLORIDE
     Indication: DIARRHOEA
     Dosage: 1 D/F, AS NEEDED
  9. BRETHINE [Concomitant]
     Active Substance: TERBUTALINE SULFATE
     Dosage: 1 D/F, 2/D
  10. CICLOPIROX. [Concomitant]
     Active Substance: CICLOPIROX
     Dosage: UNK, 2/D
  11. ZYPREXA [Suspect]
     Active Substance: OLANZAPINE
     Dosage: 50 MG, DAILY (1/D)
     Dates: start: 201002, end: 201009
  12. DITROPAN XL [Concomitant]
     Active Substance: OXYBUTYNIN CHLORIDE
     Dosage: 1 D/F, DAILY (1/D)
     Route: 048
  13. VITAMIN E-100 [Concomitant]
     Dosage: UNK, DAILY (1/D)
     Route: 048
  14. ATIVAN [Concomitant]
     Active Substance: LORAZEPAM
     Dosage: 1 D/F, 3/D
  15. FERROUS SULFATE [Concomitant]
     Active Substance: FERROUS SULFATE\FERROUS SULFATE, DRIED
     Dosage: 1 D/F, DAILY (1/D)
  16. PERI-COLACE [Concomitant]
     Active Substance: CASANTHRANOL\DOCUSATE SODIUM
     Dosage: 1 D/F, EACH EVENING
  17. ENSURE /06360301/ [Concomitant]
     Dosage: 1 D/F, 3/D
  18. CLINORIL [Concomitant]
     Active Substance: SULINDAC
     Dosage: 1 D/F, 2/D

REACTIONS (9)
  - Diarrhoea [Unknown]
  - Vomiting [Unknown]
  - Dyskinesia [Not Recovered/Not Resolved]
  - Impaired fasting glucose [Unknown]
  - Cholecystitis [Unknown]
  - Prescribed overdose [Recovered/Resolved]
  - Nausea [Unknown]
  - Ulcer [Unknown]
  - Weight decreased [Not Recovered/Not Resolved]

NARRATIVE: CASE EVENT DATE: 201002
